FAERS Safety Report 14233636 (Version 1)
Quarter: 2017Q4

REPORT INFORMATION
  Report Type: Spontaneous
  Country: JP (occurrence: JP)
  Receive Date: 20171129
  Receipt Date: 20171129
  Transmission Date: 20180321
  Serious: Yes (Other)
  Sender: FDA-Public Use
  Company Number: JP-MYLANLABS-2017M1074627

PATIENT
  Age: 82 Year
  Sex: Female

DRUGS (5)
  1. ASPIRIN                            /00002701/ [Concomitant]
     Active Substance: ASPIRIN
     Indication: CEREBRAL INFARCTION
     Route: 061
  2. FOLINIC ACID [Suspect]
     Active Substance: LEUCOVORIN
     Indication: RECTAL CANCER STAGE III
     Dosage: 20% DOSE REDUCTION
     Route: 065
     Dates: start: 2015
  3. OXALIPLATIN. [Suspect]
     Active Substance: OXALIPLATIN
     Indication: RECTAL CANCER STAGE III
     Dosage: 20% DOSE REDUCTION
     Route: 065
     Dates: start: 2015
  4. FLUOROURACIL. [Suspect]
     Active Substance: FLUOROURACIL
     Indication: RECTAL CANCER STAGE III
     Dosage: 20% DOSE REDUCTION
     Route: 065
     Dates: start: 2015
  5. TICLOPIDINE [Concomitant]
     Active Substance: TICLOPIDINE
     Indication: CEREBRAL INFARCTION
     Route: 061

REACTIONS (2)
  - Neutropenia [Unknown]
  - Stomatitis [Unknown]

NARRATIVE: CASE EVENT DATE: 2015
